FAERS Safety Report 5951078-5 (Version None)
Quarter: 2008Q4

REPORT INFORMATION
  Report Type: 
  Country: None (occurrence: None)
  Receive Date: 20081111
  Receipt Date: 20081111
  Transmission Date: 20090506
  Serious: Yes (Hospitalization)
  Sender: FDA-Public Use
  Company Number: None

PATIENT
  Age: 45 Year
  Sex: Male

DRUGS (2)
  1. FLUPHENAZINE [Suspect]
     Indication: SCHIZOPHRENIA
     Dosage: 50 MG OTHER IM
     Route: 030
     Dates: start: 20081031, end: 20081108
  2. FLUPHENAZINE [Suspect]
     Indication: SCHIZOPHRENIA
     Dosage: 10 MG BID PO
     Route: 048
     Dates: start: 20081020, end: 20081108

REACTIONS (9)
  - DROOLING [None]
  - DYSARTHRIA [None]
  - DYSPHAGIA [None]
  - HYPOPHAGIA [None]
  - INSOMNIA [None]
  - PARKINSONISM [None]
  - RESTLESSNESS [None]
  - SPEECH DISORDER [None]
  - TARDIVE DYSKINESIA [None]
